FAERS Safety Report 17956080 (Version 1)
Quarter: 2020Q2

REPORT INFORMATION
  Report Type: Spontaneous
  Country: US (occurrence: US)
  Receive Date: 20200629
  Receipt Date: 20200629
  Transmission Date: 20200714
  Serious: No
  Sender: FDA-Public Use
  Company Number: US-PFIZER INC-2020247111

PATIENT
  Age: 70 Year
  Sex: Female
  Weight: 65.77 kg

DRUGS (1)
  1. IBRANCE [Suspect]
     Active Substance: PALBOCICLIB
     Indication: BREAST CANCER METASTATIC
     Dosage: 250 MG, CYCLIC (250MG ONCE A DAY FOR 21 DAYS OFF A WEEK)
     Dates: start: 20200507

REACTIONS (4)
  - Rash [Not Recovered/Not Resolved]
  - Off label use [Unknown]
  - Arthralgia [Not Recovered/Not Resolved]
  - Fatigue [Not Recovered/Not Resolved]

NARRATIVE: CASE EVENT DATE: 2020
